FAERS Safety Report 9585221 (Version 1)
Quarter: 2013Q4

REPORT INFORMATION
  Report Type: Spontaneous
  Country: US (occurrence: US)
  Receive Date: 20131002
  Receipt Date: 20131002
  Transmission Date: 20140711
  Serious: Yes (Other)
  Sender: FDA-Public Use
  Company Number: US-AMGEN-USASP2013062600

PATIENT
  Age: 57 Year
  Sex: Female

DRUGS (18)
  1. ENBREL [Suspect]
     Indication: RHEUMATOID ARTHRITIS
     Dosage: 25 MG, 2 TIMES/WK
     Route: 058
  2. GLUCOSAMINE SULFATE [Concomitant]
     Dosage: UNK
  3. DILTIAZEM CD [Concomitant]
     Dosage: UNK
  4. CLONIDINE HCL [Concomitant]
     Dosage: UNK
  5. SULINDAC [Concomitant]
     Dosage: UNK
  6. HYDROCHLOROTHIAZIDE [Concomitant]
     Dosage: UNK
  7. ARAVA [Concomitant]
     Dosage: UNK
  8. PLAQUENIL                          /00072602/ [Concomitant]
     Dosage: UNK
  9. FOLIC ACID [Concomitant]
     Dosage: 1 MG, UNK
  10. POTASSIUM CL [Concomitant]
     Dosage: 8 MEQ
  11. LIDODERM [Concomitant]
     Dosage: UNK
  12. VOLTAREN                           /00372301/ [Concomitant]
     Dosage: UNK
  13. MORTIN [Concomitant]
     Dosage: UNK
  14. FLUCYTOSINE [Concomitant]
     Dosage: UNK
  15. MUCINEX D [Concomitant]
     Dosage: UNK
  16. PROVENTIL                          /00139501/ [Concomitant]
     Dosage: UNK
  17. PRILOSEC                           /00661201/ [Concomitant]
     Dosage: UNK
  18. OMEGA 3                            /01333901/ [Concomitant]
     Dosage: UNK

REACTIONS (2)
  - Sinusitis [Not Recovered/Not Resolved]
  - Injection site bruising [Not Recovered/Not Resolved]
